FAERS Safety Report 8597991-4 (Version None)
Quarter: 2012Q3

REPORT INFORMATION
  Report Type: 
  Country: None (occurrence: None)
  Receive Date: 20120816
  Receipt Date: 20120806
  Transmission Date: 20120928
  Serious: Yes (Hospitalization)
  Sender: FDA-Public Use
  Company Number: GB-CELGENEUS-167-50794-12071868

PATIENT
  Sex: Female

DRUGS (1)
  1. VIDAZA [Suspect]
     Route: 065
     Dates: start: 20111010, end: 20120711

REACTIONS (1)
  - PULMONARY EMBOLISM [None]
